FAERS Safety Report 7553818-0 (Version None)
Quarter: 2011Q2

REPORT INFORMATION
  Report Type: 
  Country: None (occurrence: None)
  Receive Date: 20110617
  Receipt Date: 20110613
  Transmission Date: 20111010
  Serious: Yes (Hospitalization, Other)
  Sender: FDA-Public Use
  Company Number: US-SANOFI-AVENTIS-2011SA038123

PATIENT
  Age: 73 Year
  Sex: Male

DRUGS (8)
  1. DABIGATRAN [Concomitant]
  2. SYNTHROID [Concomitant]
  3. MULTAQ [Suspect]
     Indication: ATRIAL FIBRILLATION
     Route: 048
  4. DIGOXIN [Concomitant]
  5. ATORVASTATIN [Concomitant]
  6. ANTINEOPLASTIC AGENTS [Concomitant]
     Indication: PROSTATE CANCER
  7. ESOMEPRAZOLE MAGNESIUM [Concomitant]
  8. OSCAL [Concomitant]

REACTIONS (4)
  - INTERSTITIAL LUNG DISEASE [None]
  - UNDERDOSE [None]
  - DYSPNOEA [None]
  - COUGH [None]
